FAERS Safety Report 16269667 (Version 1)
Quarter: 2019Q2

REPORT INFORMATION
  Report Type: Spontaneous
  Country: US (occurrence: US)
  Receive Date: 20190502
  Receipt Date: 20190502
  Transmission Date: 20190711
  Serious: Yes (Hospitalization)
  Sender: FDA-Public Use
  Company Number: None

PATIENT
  Sex: Female

DRUGS (6)
  1. NORVASC [Concomitant]
     Active Substance: AMLODIPINE BESYLATE
  2. ETOPOSIDE. [Suspect]
     Active Substance: ETOPOSIDE
     Indication: B-CELL LYMPHOMA
     Dosage: ?          OTHER FREQUENCY:DAYS 2+3 OF 21DAYS;?
     Route: 048
     Dates: start: 20190129
  3. ATIVAN [Concomitant]
     Active Substance: LORAZEPAM
  4. ZARXIO [Suspect]
     Active Substance: FILGRASTIM-SNDZ
     Indication: B-CELL LYMPHOMA
     Dosage: ?          OTHER FREQUENCY:AT HS AS DIRECTED;?
     Route: 058
     Dates: start: 20190115
  5. HYDROCHLOROT [Concomitant]
     Active Substance: HYDROCHLOROTHIAZIDE
  6. MAGNESIUM-OX [Concomitant]

REACTIONS (1)
  - Hospitalisation [None]
